FAERS Safety Report 17811932 (Version 1)
Quarter: 2020Q2

REPORT INFORMATION
  Report Type: Spontaneous
  Country: CA (occurrence: CA)
  Receive Date: 20200521
  Receipt Date: 20200521
  Transmission Date: 20200714
  Serious: Yes (Other)
  Sender: FDA-Public Use
  Company Number: CA-TEVA-2020-CA-1237079

PATIENT
  Age: 33 Year
  Sex: Male

DRUGS (7)
  1. THIAMINE. [Concomitant]
     Active Substance: THIAMINE
  2. OLANZAPINE. [Suspect]
     Active Substance: OLANZAPINE
     Route: 065
  3. MULTIVITAMINS WITH MINERALS [Concomitant]
     Active Substance: MINERALS\VITAMINS
  4. LOXAPINE. [Suspect]
     Active Substance: LOXAPINE
     Indication: AGITATION
     Route: 048
  5. SYMBICORT [Concomitant]
     Active Substance: BUDESONIDE\FORMOTEROL FUMARATE DIHYDRATE
  6. OLANZAPINE. [Suspect]
     Active Substance: OLANZAPINE
     Route: 065
  7. VITAMIN B12 [Concomitant]
     Active Substance: CYANOCOBALAMIN

REACTIONS (6)
  - Anxiety [Recovered/Resolved]
  - Resuscitation [Recovered/Resolved]
  - Dyspnoea [Recovered/Resolved]
  - Dystonia [Recovered/Resolved]
  - Panic attack [Recovered/Resolved]
  - Musculoskeletal stiffness [Recovered/Resolved]
